FAERS Safety Report 5907067-X (Version None)
Quarter: 2008Q4

REPORT INFORMATION
  Report Type: 
  Country: None (occurrence: None)
  Receive Date: 20081002
  Receipt Date: 20081002
  Transmission Date: 20090506
  Serious: Yes (Other)
  Sender: FDA-Public Use
  Company Number: None

PATIENT
  Sex: Female
  Weight: 111.1313 kg

DRUGS (4)
  1. SPIRIVA [Suspect]
     Indication: ASTHMA
     Dates: start: 20080131, end: 20080531
  2. SPIRIVA [Suspect]
     Indication: CHRONIC OBSTRUCTIVE PULMONARY DISEASE
     Dates: start: 20080131, end: 20080531
  3. SPIRIVA [Suspect]
     Indication: ASTHMA
     Dates: start: 20080801, end: 20081001
  4. SPIRIVA [Suspect]
     Indication: CHRONIC OBSTRUCTIVE PULMONARY DISEASE
     Dates: start: 20080801, end: 20081001

REACTIONS (1)
  - PRESYNCOPE [None]
